FAERS Safety Report 8757068 (Version 2)
Quarter: 2012Q4

REPORT INFORMATION
  Report Type: 
  Country: JP (occurrence: JP)
  Receive Date: 20120828
  Receipt Date: 20121003
  Transmission Date: 20130627
  Serious: Yes (Other)
  Sender: FDA-Public Use
  Company Number: JP-PFIZER INC-2012207820

PATIENT
  Age: 86 Year
  Sex: Female

DRUGS (2)
  1. ALDACTONE A [Suspect]
     Dosage: 25 mg, daily
     Route: 048
     Dates: start: 20120726
  2. FERROMIA [Concomitant]
     Indication: ANAEMIA
     Route: 048

REACTIONS (2)
  - Haemoglobin decreased [Unknown]
  - Anaemia [Unknown]
